FAERS Safety Report 4819035-X (Version None)
Quarter: 2005Q4

REPORT INFORMATION
  Report Type: 
  Country: None (occurrence: None)
  Receive Date: 20051103
  Receipt Date: 20051031
  Transmission Date: 20060501
  Serious: Yes (Other)
  Sender: FDA-Public Use
  Company Number: GB-SOLVAY-00305003673

PATIENT
  Age: 14 Year
  Sex: Male

DRUGS (3)
  1. SULPIRIDE [Concomitant]
     Indication: TOURETTE'S DISORDER
     Dosage: DAILY DOSE: 800 MILLIGRAM(S)
     Route: 048
     Dates: start: 20020101
  2. FLUVOXAMINE MALEATE [Suspect]
     Indication: OBSESSIVE-COMPULSIVE DISORDER
     Dosage: DAILY DOSE: 100 MILLIGRAM(S)
     Route: 048
     Dates: start: 20050905, end: 20050101
  3. FLUVOXAMINE MALEATE [Suspect]
     Dosage: DAILY DOSE: 50 MILLIGRAM(S)
     Route: 048
     Dates: start: 20050101, end: 20051001

REACTIONS (4)
  - HEAD TITUBATION [None]
  - HYPERHIDROSIS [None]
  - MUSCLE SPASMS [None]
  - PALLOR [None]
